FAERS Safety Report 15699325 (Version 1)
Quarter: 2018Q4

REPORT INFORMATION
  Report Type: Spontaneous
  Country: US (occurrence: US)
  Receive Date: 20181126
  Receipt Date: 20181126
  Transmission Date: 20190205
  Serious: Yes (Other)
  Sender: FDA-Public Use
  Company Number: None

PATIENT
  Age: 26 Year
  Sex: Female
  Weight: 57.88 kg

DRUGS (4)
  1. ORTHO-NOVUM [Suspect]
     Active Substance: ETHINYL ESTRADIOL\NORETHINDRONE
  2. GIANVI [Suspect]
     Active Substance: DROSPIRENONE\ETHINYL ESTRADIOL
     Route: 048
     Dates: start: 20180814, end: 20180823
  3. YASMIN [Suspect]
     Active Substance: DROSPIRENONE\ETHINYL ESTRADIOL
  4. ORTHO CYCLEN [Suspect]
     Active Substance: ETHINYL ESTRADIOL\NORGESTIMATE

REACTIONS (6)
  - Headache [None]
  - Dysfunctional uterine bleeding [None]
  - Hot flush [None]
  - Fatigue [None]
  - Muscle spasms [None]
  - Mood swings [None]

NARRATIVE: CASE EVENT DATE: 20180814
